FAERS Safety Report 20819045 (Version 7)
Quarter: 2022Q3

REPORT INFORMATION
  Report Type: Report from Study
  Country: US (occurrence: US)
  Receive Date: 20220512
  Receipt Date: 20220929
  Transmission Date: 20221027
  Serious: Yes (Hospitalization, Other)
  Sender: FDA-Public Use
  Company Number: US-XERIS PHARMACEUTICALS-2022XER00179

PATIENT
  Sex: Female
  Weight: 107.48 kg

DRUGS (7)
  1. RECORLEV [Suspect]
     Active Substance: LEVOKETOCONAZOLE
     Indication: Pituitary-dependent Cushing^s syndrome
     Dosage: ONE TABLET (150 MG), 2X/DAY
     Route: 048
     Dates: start: 202204, end: 2022
  2. RECORLEV [Suspect]
     Active Substance: LEVOKETOCONAZOLE
     Dosage: 300 MG (2 TABLETS), 1X/DAY IN THE MORNING
     Route: 048
     Dates: start: 2022
  3. RECORLEV [Suspect]
     Active Substance: LEVOKETOCONAZOLE
     Dosage: 150 MG (1 TABLET), 1X/DAY IN THE EVENING BEFORE DINNER
     Route: 048
     Dates: start: 2022
  4. IRBESARTAN [Concomitant]
     Active Substance: IRBESARTAN
  5. VITAMINS [Concomitant]
     Active Substance: VITAMINS
  6. VITAMIN D [Concomitant]
     Active Substance: VITAMIN D NOS
     Dosage: 50000 MG, 1X/WEEK
  7. UNSPECIFIED INGREDIENT [Concomitant]
     Active Substance: UNSPECIFIED INGREDIENT

REACTIONS (11)
  - Chest discomfort [Not Recovered/Not Resolved]
  - Contusion [Recovered/Resolved]
  - Weight increased [Unknown]
  - Gastrooesophageal reflux disease [Recovering/Resolving]
  - Product dose omission issue [Unknown]
  - Joint swelling [Unknown]
  - Pain in extremity [Unknown]
  - Arthralgia [Unknown]
  - Sensitivity to weather change [Unknown]
  - Headache [Unknown]
  - Dyspepsia [Recovering/Resolving]

NARRATIVE: CASE EVENT DATE: 20220101
